FAERS Safety Report 6262573-6 (Version None)
Quarter: 2009Q3

REPORT INFORMATION
  Report Type: 
  Country: None (occurrence: None)
  Receive Date: 20090709
  Receipt Date: 20090706
  Transmission Date: 20100115
  Serious: Yes (Hospitalization, Other)
  Sender: FDA-Public Use
  Company Number: US-ELI_LILLY_AND_COMPANY-US200907000883

PATIENT
  Sex: Male

DRUGS (7)
  1. HUMALOG MIX 75/25 [Suspect]
  2. PLAVIX [Concomitant]
  3. GLIPIZIDE [Concomitant]
  4. MULTI-VITAMIN [Concomitant]
     Indication: GLAUCOMA
  5. MULTIVITAMIN [Concomitant]
     Indication: GLAUCOMA
  6. DIURETICS [Concomitant]
  7. OXYGEN [Concomitant]
     Dosage: 3 LITER, DAILY (1/D)

REACTIONS (5)
  - CHRONIC OBSTRUCTIVE PULMONARY DISEASE [None]
  - MEMORY IMPAIRMENT [None]
  - PNEUMONIA [None]
  - TRANSIENT ISCHAEMIC ATTACK [None]
  - WRONG TECHNIQUE IN DRUG USAGE PROCESS [None]
